FAERS Safety Report 9724900 (Version 1)
Quarter: 2013Q4

REPORT INFORMATION
  Report Type: Spontaneous
  Country: US (occurrence: US)
  Receive Date: 20131202
  Receipt Date: 20131202
  Transmission Date: 20140711
  Serious: No
  Sender: FDA-Public Use
  Company Number: US-ENDO PHARMACEUTICALS INC.-OXYC20120056

PATIENT
  Age: 58 Year
  Sex: Female
  Weight: 67.19 kg

DRUGS (1)
  1. OXYCODONE HCL [Suspect]
     Indication: MIGRAINE
     Route: 048
     Dates: start: 2012

REACTIONS (1)
  - Influenza like illness [Recovered/Resolved]
